FAERS Safety Report 11232842 (Version 1)
Quarter: 2015Q3

REPORT INFORMATION
  Report Type: Spontaneous
  Country: KR (occurrence: KR)
  Receive Date: 20150701
  Receipt Date: 20150701
  Transmission Date: 20151125
  Serious: Yes (Other)
  Sender: FDA-Public Use
  Company Number: KR-BAXTER-2015BAX034836

PATIENT
  Age: 54 Year
  Sex: Male
  Weight: 77 kg

DRUGS (6)
  1. OXYGEN. [Suspect]
     Active Substance: OXYGEN
     Indication: MAINTENANCE OF ANAESTHESIA
     Route: 055
  2. THIOPENTAL SODIUM. [Suspect]
     Active Substance: THIOPENTAL SODIUM
     Indication: INDUCTION OF ANAESTHESIA
     Route: 065
  3. ALFENTANIL. [Suspect]
     Active Substance: ALFENTANIL
     Indication: HAEMODYNAMIC INSTABILITY
     Route: 065
  4. BAXTER SEVOFLURANE [Suspect]
     Active Substance: SEVOFLURANE
     Indication: MAINTENANCE OF ANAESTHESIA
     Route: 055
  5. VECURONIUM [Suspect]
     Active Substance: VECURONIUM BROMIDE
     Indication: HYPOTONIA
     Route: 065
  6. GLYCOPYRROLATE. [Suspect]
     Active Substance: GLYCOPYRROLATE
     Indication: PRODUCT USED FOR UNKNOWN INDICATION
     Route: 065

REACTIONS (3)
  - Altered state of consciousness [Not Recovered/Not Resolved]
  - Airway burns [Recovered/Resolved]
  - Tracheal haemorrhage [Unknown]
